FAERS Safety Report 6583768-8 (Version None)
Quarter: 2010Q1

REPORT INFORMATION
  Report Type: 
  Country: None (occurrence: None)
  Receive Date: 20100213
  Receipt Date: 20100213
  Transmission Date: 20100710
  Serious: Yes (Hospitalization)
  Sender: FDA-Public Use
  Company Number: None

PATIENT
  Age: 36 Year
  Sex: Female
  Weight: 65.7716 kg

DRUGS (1)
  1. BACTRIM DS [Suspect]
     Indication: CELLULITIS
     Dates: start: 20100203, end: 20100208

REACTIONS (1)
  - RASH MACULAR [None]
